FAERS Safety Report 19713738 (Version 1)
Quarter: 2021Q3

REPORT INFORMATION
  Report Type: Report from Study
  Country: None (occurrence: PR)
  Receive Date: 20210817
  Receipt Date: 20210817
  Transmission Date: 20211014
  Serious: Yes (Other)
  Sender: FDA-Public Use
  Company Number: PR-ABBVIE-21K-131-4040195-00

PATIENT
  Age: 56 Year
  Sex: Female

DRUGS (1)
  1. HUMIRA [Suspect]
     Active Substance: ADALIMUMAB
     Indication: PSORIATIC ARTHROPATHY
     Route: 058
     Dates: start: 20210322

REACTIONS (1)
  - Catheterisation cardiac [Recovering/Resolving]

NARRATIVE: CASE EVENT DATE: 20210806
